FAERS Safety Report 10066452 (Version 1)
Quarter: 2014Q2

REPORT INFORMATION
  Report Type: Spontaneous
  Country: US (occurrence: US)
  Receive Date: 20140408
  Receipt Date: 20140408
  Transmission Date: 20141212
  Serious: No
  Sender: FDA-Public Use
  Company Number: US-TEVA-474126USA

PATIENT
  Age: 23 Year
  Sex: Female
  Weight: 57.66 kg

DRUGS (3)
  1. PARAGARD 380A [Suspect]
     Indication: CONTRACEPTION
     Route: 015
     Dates: start: 20140304, end: 20140401
  2. CITALOPRAM [Concomitant]
     Indication: ANXIETY
     Dosage: 20 MILLIGRAM DAILY;
     Route: 048
  3. CITALOPRAM [Concomitant]
     Indication: DEPRESSION

REACTIONS (1)
  - Device expulsion [Recovered/Resolved]
